FAERS Safety Report 14364103 (Version 1)
Quarter: 2018Q1

REPORT INFORMATION
  Report Type: Spontaneous
  Country: US (occurrence: US)
  Receive Date: 20180108
  Receipt Date: 20180108
  Transmission Date: 20180509
  Serious: No
  Sender: FDA-Public Use
  Company Number: US-MYLANLABS-2017M1077597

PATIENT
  Age: 50 Year
  Sex: Female
  Weight: 70 kg

DRUGS (1)
  1. ESTRADIOL TRANSDERMAL SYSTEM [Suspect]
     Active Substance: ESTRADIOL
     Indication: OESTROGEN DEFICIENCY
     Dosage: UNK UNK, BIWEEKLY
     Route: 062
     Dates: start: 20170201

REACTIONS (4)
  - Application site pruritus [Recovered/Resolved]
  - Application site erythema [Recovered/Resolved]
  - Product adhesion issue [Unknown]
  - Application site swelling [Recovered/Resolved]

NARRATIVE: CASE EVENT DATE: 20170201
